FAERS Safety Report 23960655 (Version 2)
Quarter: 2024Q2

REPORT INFORMATION
  Report Type: Spontaneous
  Country: US (occurrence: US)
  Receive Date: 20240611
  Receipt Date: 20240625
  Transmission Date: 20240715
  Serious: Yes (Other)
  Sender: FDA-Public Use
  Company Number: US-UPSHER-SMITH LABORATORIES, LLC-2024USL00475

PATIENT
  Sex: Male

DRUGS (5)
  1. VIGADRONE [Suspect]
     Active Substance: VIGABATRIN
     Indication: Infantile spasms
     Dosage: 150 MG, 2X/DAY
     Route: 048
     Dates: start: 2024
  2. VIGADRONE [Suspect]
     Active Substance: VIGABATRIN
     Dosage: 300 MG, 2X/DAY
     Route: 048
     Dates: start: 2024
  3. VIGADRONE [Suspect]
     Active Substance: VIGABATRIN
     Dosage: 300 MG, 2X/DAY
     Route: 048
     Dates: start: 2024
  4. VIGADRONE [Suspect]
     Active Substance: VIGABATRIN
     Dosage: 300 MG, 2X/DAY
     Route: 048
     Dates: start: 2024
  5. UNSPECIFIED INGREDIENT [Suspect]
     Active Substance: UNSPECIFIED INGREDIENT

REACTIONS (6)
  - Infantile spasms [Not Recovered/Not Resolved]
  - Middle insomnia [Not Recovered/Not Resolved]
  - Chills [Unknown]
  - Constipation [Not Recovered/Not Resolved]
  - Tremor [Unknown]
  - Product use issue [Not Recovered/Not Resolved]

NARRATIVE: CASE EVENT DATE: 20240101
